FAERS Safety Report 17057923 (Version 3)
Quarter: 2020Q1

REPORT INFORMATION
  Report Type: Report from Study
  Country: ES (occurrence: ES)
  Receive Date: 20191121
  Receipt Date: 20200101
  Transmission Date: 20200409
  Serious: Yes (Other)
  Sender: FDA-Public Use
  Company Number: ES-ROCHE-2234857

PATIENT
  Age: 8 Year
  Sex: Male

DRUGS (10)
  1. GRANULOCYTE COLONY STIMULATING FACTOR [Concomitant]
     Active Substance: GRANULOCYTE COLONY-STIMULATING FACTOR NOS
  2. MYCOPHENOLATE MOFETIL. [Suspect]
     Active Substance: MYCOPHENOLATE MOFETIL
     Indication: IMMUNOSUPPRESSANT DRUG THERAPY
     Route: 065
  3. PREDNISONE. [Suspect]
     Active Substance: PREDNISONE
     Indication: IMMUNOSUPPRESSANT DRUG THERAPY
     Route: 065
  4. THIOTEPA. [Suspect]
     Active Substance: THIOTEPA
     Indication: IMMUNOSUPPRESSANT DRUG THERAPY
  5. FLUDARABINE [Suspect]
     Active Substance: FLUDARABINE PHOSPHATE
     Indication: STEM CELL TRANSPLANT
     Route: 065
  6. TRIMETHOPRIM. [Concomitant]
     Active Substance: TRIMETHOPRIM
     Indication: PROPHYLAXIS
     Route: 065
  7. SULFAMETHOXAZOLE [Concomitant]
     Active Substance: SULFAMETHOXAZOLE
     Indication: PROPHYLAXIS
     Route: 065
  8. ACICLOVIR [Concomitant]
     Active Substance: ACYCLOVIR
     Indication: PROPHYLAXIS
     Route: 065
  9. THIOTEPA. [Suspect]
     Active Substance: THIOTEPA
     Indication: STEM CELL TRANSPLANT
     Route: 065
  10. MICAFUNGIN. [Concomitant]
     Active Substance: MICAFUNGIN SODIUM
     Indication: PROPHYLAXIS
     Route: 065

REACTIONS (6)
  - Pre-engraftment immune reaction [Unknown]
  - Product use in unapproved indication [Unknown]
  - Encephalitis viral [Recovered/Resolved]
  - Off label use [Unknown]
  - Acute graft versus host disease in intestine [Unknown]
  - Human herpesvirus 6 infection [Unknown]
